FAERS Safety Report 14008410 (Version 1)
Quarter: 2017Q3

REPORT INFORMATION
  Report Type: Spontaneous
  Country: US (occurrence: US)
  Receive Date: 20170925
  Receipt Date: 20170925
  Transmission Date: 20171128
  Serious: Yes (Hospitalization, Disabling)
  Sender: FDA-Public Use
  Company Number: None

PATIENT
  Age: 65 Year
  Sex: Female
  Weight: 65.25 kg

DRUGS (5)
  1. NIFEDIPINE. [Suspect]
     Active Substance: NIFEDIPINE
     Indication: HYPERTENSION
     Route: 048
     Dates: start: 20151028, end: 20170404
  2. SODIUM BICARBONATE. [Concomitant]
     Active Substance: SODIUM BICARBONATE
  3. NIFEDIPINE. [Suspect]
     Active Substance: NIFEDIPINE
     Indication: CARDIAC FAILURE CONGESTIVE
     Route: 048
     Dates: start: 20151028, end: 20170404
  4. RENVELA [Concomitant]
     Active Substance: SEVELAMER CARBONATE
  5. CARVEDILOL. [Concomitant]
     Active Substance: CARVEDILOL

REACTIONS (3)
  - Cardiac failure congestive [None]
  - Liver disorder [None]
  - Renal failure [None]

NARRATIVE: CASE EVENT DATE: 20151028
